FAERS Safety Report 5275118-4 (Version None)
Quarter: 2007Q1

REPORT INFORMATION
  Report Type: 
  Country: None (occurrence: None)
  Receive Date: 20070326
  Receipt Date: 20070312
  Transmission Date: 20070707
  Serious: Yes (Hospitalization, Other)
  Sender: FDA-Public Use
  Company Number: PHRM2007FR01048

PATIENT
  Age: 74 Year
  Sex: Female
  Weight: 61 kg

DRUGS (6)
  1. ZOMETA [Suspect]
     Indication: METASTASES TO BONE
     Dosage: 4 MG, QMO
     Route: 042
     Dates: start: 20041001, end: 20060327
  2. RADIOTHERAPY [Suspect]
     Indication: METASTASES TO BONE
     Dosage: 8 GY, ONCE/SINGLE
     Dates: start: 20041201, end: 20041201
  3. RADIOTHERAPY [Suspect]
     Dates: start: 20050810, end: 20050810
  4. VELBE [Suspect]
     Indication: RENAL CANCER METASTATIC
     Dosage: 2 INJECTIONS
     Dates: start: 20050114
  5. ROFERON-A [Suspect]
     Indication: RENAL CANCER METASTATIC
     Dates: start: 20050114, end: 20050810
  6. SUTENT [Concomitant]
     Indication: RENAL CANCER METASTATIC
     Dates: start: 20060425

REACTIONS (7)
  - BIOPSY [None]
  - CREATININE RENAL CLEARANCE DECREASED [None]
  - MANDIBULECTOMY [None]
  - METASTASES TO BONE [None]
  - OSTEONECROSIS [None]
  - PAIN IN JAW [None]
  - TOOTH EXTRACTION [None]
